FAERS Safety Report 16883905 (Version 1)
Quarter: 2019Q4

REPORT INFORMATION
  Report Type: Spontaneous
  Country: US (occurrence: US)
  Receive Date: 20191004
  Receipt Date: 20191004
  Transmission Date: 20200122
  Serious: No
  Sender: FDA-Public Use
  Company Number: US-MELINTA THERAPEUTICS, INC-US-MLNT-18-00315

PATIENT
  Age: 32 Year
  Sex: Female

DRUGS (1)
  1. ORBACTIV [Suspect]
     Active Substance: ORITAVANCIN
     Indication: INFECTION
     Dosage: NOT PROVIDED
     Route: 041
     Dates: start: 20181004, end: 20181004

REACTIONS (3)
  - Rash vesicular [Recovered/Resolved]
  - Pruritus [Recovered/Resolved]
  - Chest discomfort [Recovered/Resolved]

NARRATIVE: CASE EVENT DATE: 20181004
